FAERS Safety Report 11696207 (Version 2)
Quarter: 2015Q4

REPORT INFORMATION
  Report Type: Report from Study
  Country: JP (occurrence: JP)
  Receive Date: 20151104
  Receipt Date: 20151127
  Transmission Date: 20160304
  Serious: Yes (Death, Hospitalization, Other)
  Sender: FDA-Public Use
  Company Number: JP-VIFOR (INTERNATIONAL) INC.-VIT-2015-02964

PATIENT
  Age: 37 Year
  Sex: Male

DRUGS (14)
  1. PLETAAL [Concomitant]
     Active Substance: CILOSTAZOL
     Route: 048
  2. MAINTATE [Concomitant]
     Active Substance: BISOPROLOL FUMARATE
     Route: 048
     Dates: start: 20121013, end: 20130106
  3. MEDROL [Concomitant]
     Active Substance: METHYLPREDNISOLONE
     Route: 048
     Dates: start: 20130212
  4. ASPARA POTASSIUM [Concomitant]
     Active Substance: POTASSIUM ASPARTATE
     Route: 048
  5. MIRCERA [Suspect]
     Active Substance: METHOXY POLYETHYLENE GLYCOL-EPOETIN BETA
     Indication: NEPHROGENIC ANAEMIA
     Route: 058
     Dates: start: 20121013, end: 20121013
  6. MIRCERA [Suspect]
     Active Substance: METHOXY POLYETHYLENE GLYCOL-EPOETIN BETA
     Route: 058
     Dates: start: 20121107, end: 20121212
  7. MEDROL [Concomitant]
     Active Substance: METHYLPREDNISOLONE
     Route: 048
     Dates: start: 20120212, end: 20130106
  8. NEXIUM [Concomitant]
     Active Substance: ESOMEPRAZOLE MAGNESIUM
     Route: 048
     Dates: start: 20130117
  9. MUCODYNE [Concomitant]
     Active Substance: CARBOCYSTEINE
     Route: 048
  10. MEDROL [Concomitant]
     Active Substance: METHYLPREDNISOLONE
     Route: 048
     Dates: start: 20130117, end: 20130129
  11. NEXIUM [Concomitant]
     Active Substance: ESOMEPRAZOLE MAGNESIUM
     Route: 048
     Dates: end: 20130106
  12. ALFAROL [Concomitant]
     Active Substance: ALFACALCIDOL
     Route: 048
  13. SEROQUEL [Concomitant]
     Active Substance: QUETIAPINE FUMARATE
     Route: 048
     Dates: end: 20130224
  14. GASLON [Concomitant]
     Active Substance: IRSOGLADINE MALEATE
     Route: 048

REACTIONS (7)
  - Osteomyelitis [Not Recovered/Not Resolved]
  - Depressed level of consciousness [Unknown]
  - Pancreatitis acute [Recovered/Resolved]
  - Apnoea [Unknown]
  - Epilepsy [Fatal]
  - Platelet count decreased [Unknown]
  - Cerebral infarction [Fatal]

NARRATIVE: CASE EVENT DATE: 20130107
